FAERS Safety Report 4269419-6 (Version None)
Quarter: 2004Q1

REPORT INFORMATION
  Report Type: 
  Country: None (occurrence: None)
  Receive Date: 20040109
  Receipt Date: 20030106
  Transmission Date: 20041129
  Serious: Yes (Hospitalization)
  Sender: FDA-Public Use
  Company Number: 0300025EN0020P

PATIENT
  Age: 2 Year
  Sex: Female

DRUGS (1)
  1. ONCASPAR [Suspect]
     Indication: ACUTE LEUKAEMIA
     Dosage: 1000 UL/J IV
     Route: 042
     Dates: start: 20030512, end: 20030915

REACTIONS (3)
  - ANGIONEUROTIC OEDEMA [None]
  - GASTROINTESTINAL DISORDER [None]
  - PALLOR [None]
